FAERS Safety Report 9283040 (Version 1)
Quarter: 2013Q2

REPORT INFORMATION
  Report Type: Spontaneous
  Country: US (occurrence: US)
  Receive Date: 20130510
  Receipt Date: 20130510
  Transmission Date: 20140414
  Serious: No
  Sender: FDA-Public Use
  Company Number: US-GLAXOSMITHKLINE-A0974701A

PATIENT
  Age: 53 Year
  Sex: Female
  Weight: 99 kg

DRUGS (14)
  1. TYKERB [Suspect]
     Indication: PRODUCT USED FOR UNKNOWN INDICATION
     Dosage: 250MG PER DAY
     Route: 048
  2. ENALAPRIL [Concomitant]
  3. GLYBURIDE [Concomitant]
  4. JANUVIA [Concomitant]
  5. ATIVAN [Concomitant]
  6. NEXIUM [Concomitant]
  7. AMBIEN [Concomitant]
  8. PROCHLORPERAZINE [Concomitant]
  9. CALCITRATE [Concomitant]
  10. VITAMIN D [Concomitant]
  11. HERCEPTIN [Concomitant]
  12. ZOMETA [Concomitant]
  13. LUPRON [Concomitant]
  14. TYLENOL PM [Concomitant]

REACTIONS (4)
  - Fatigue [Unknown]
  - Diarrhoea [Unknown]
  - Rash [Unknown]
  - Hyperaesthesia [Unknown]
